FAERS Safety Report 6167707-X (Version None)
Quarter: 2009Q2

REPORT INFORMATION
  Report Type: 
  Country: None (occurrence: None)
  Receive Date: 20090424
  Receipt Date: 20090421
  Transmission Date: 20091009
  Serious: Yes (Death)
  Sender: FDA-Public Use
  Company Number: US-GILEAD-2009-0021419

PATIENT
  Sex: Male
  Weight: 63.56 kg

DRUGS (14)
  1. LETAIRIS [Suspect]
     Indication: PULMONARY ARTERIAL HYPERTENSION
     Route: 048
     Dates: start: 20081001, end: 20090331
  2. WARFARIN SODIUM [Concomitant]
  3. ASPIRIN [Concomitant]
  4. FUROSEMIDE [Concomitant]
  5. LISINOPRIL [Concomitant]
  6. METOPROLOL TARTRATE [Concomitant]
  7. ISOSORBIDE DN [Concomitant]
  8. LIPITOR [Concomitant]
  9. SIMVASTATIN [Concomitant]
  10. COMBIVENT [Concomitant]
  11. SPIRIVA [Concomitant]
  12. HYDROXYUREA [Concomitant]
  13. ZYRTEC [Concomitant]
  14. MACRODANTIN [Concomitant]

REACTIONS (2)
  - CHRONIC MYELOID LEUKAEMIA [None]
  - RESPIRATORY FAILURE [None]
